FAERS Safety Report 12081160 (Version 2)
Quarter: 2016Q2

REPORT INFORMATION
  Report Type: Spontaneous
  Country: NL (occurrence: NL)
  Receive Date: 20160216
  Receipt Date: 20160623
  Transmission Date: 20160815
  Serious: Yes (Other)
  Sender: FDA-Public Use
  Company Number: NL-TEVA-630762ISR

PATIENT
  Age: 51 Year
  Sex: Male

DRUGS (1)
  1. ARIPIPRAZOL TEVA 15 MG, TABLETTEN [Suspect]
     Active Substance: ARIPIPRAZOLE
     Indication: MENTAL DISORDER
     Dosage: 15 MILLIGRAM DAILY;
     Route: 048
     Dates: start: 20160105, end: 20160110

REACTIONS (14)
  - Drug dependence [Unknown]
  - Hyperhidrosis [Unknown]
  - Arrhythmia [Recovered/Resolved]
  - Product substitution issue [Unknown]
  - Erythema [Recovered/Resolved]
  - Pulse abnormal [Unknown]
  - Hyperhidrosis [Recovered/Resolved]
  - Logorrhoea [Unknown]
  - Circadian rhythm sleep disorder [Unknown]
  - Night sweats [Unknown]
  - Sleep disorder [Unknown]
  - Feeling abnormal [Unknown]
  - Influenza like illness [Recovered/Resolved]
  - Flushing [Recovered/Resolved]

NARRATIVE: CASE EVENT DATE: 20160105
